FAERS Safety Report 8493655-6 (Version None)
Quarter: 2012Q3

REPORT INFORMATION
  Report Type: 
  Country: None (occurrence: None)
  Receive Date: 20120706
  Receipt Date: 20120628
  Transmission Date: 20120928
  Serious: Yes (Hospitalization)
  Sender: FDA-Public Use
  Company Number: US-ABBOTT-12P-163-0951020-00

PATIENT
  Sex: Female
  Weight: 61.29 kg

DRUGS (2)
  1. HUMIRA [Suspect]
     Indication: PSORIATIC ARTHROPATHY
     Route: 058
     Dates: start: 20110101, end: 20111101
  2. HUMIRA [Suspect]
     Route: 058
     Dates: start: 20110101, end: 20110101

REACTIONS (3)
  - SPINAL FUSION SURGERY [None]
  - DRUG INEFFECTIVE [None]
  - NECK INJURY [None]
